FAERS Safety Report 25902925 (Version 1)
Quarter: 2025Q4

REPORT INFORMATION
  Report Type: Spontaneous
  Country: US (occurrence: None)
  Receive Date: 20251009
  Receipt Date: 20251009
  Transmission Date: 20260118
  Serious: Yes (Other)
  Sender: FDA-CTU
  Company Number: None

PATIENT

DRUGS (1)
  1. AUVELITY [Suspect]
     Active Substance: BUPROPION HYDROCHLORIDE\DEXTROMETHORPHAN HYDROBROMIDE

REACTIONS (6)
  - Musculoskeletal stiffness [None]
  - Movement disorder [None]
  - Gait disturbance [None]
  - Clonus [None]
  - Flushing [None]
  - Therapy cessation [None]

NARRATIVE: CASE EVENT DATE: 20251002
